FAERS Safety Report 7516675-4 (Version None)
Quarter: 2011Q2

REPORT INFORMATION
  Report Type: 
  Country: None (occurrence: None)
  Receive Date: 20110601
  Receipt Date: 20110526
  Transmission Date: 20111010
  Serious: Yes (Other)
  Sender: FDA-Public Use
  Company Number: CA-ABBOTT-11P-028-0728926-00

PATIENT
  Sex: Female
  Weight: 81.72 kg

DRUGS (4)
  1. METOPROLOL TARTRATE [Concomitant]
     Indication: PRODUCT USED FOR UNKNOWN INDICATION
     Route: 048
  2. NORVASC [Concomitant]
     Indication: HYPERTENSION
     Route: 048
  3. PENTASA [Concomitant]
     Indication: ANTIINFLAMMATORY THERAPY
     Dosage: 9-500 MG TABS DAILY
     Route: 048
  4. HUMIRA [Suspect]
     Indication: COLITIS ULCERATIVE
     Route: 058
     Dates: start: 20090903

REACTIONS (2)
  - THROMBOSIS [None]
  - DRUG INEFFECTIVE [None]
